FAERS Safety Report 25460171 (Version 1)
Quarter: 2025Q2

REPORT INFORMATION
  Report Type: Spontaneous
  Country: US (occurrence: US)
  Receive Date: 20250620
  Receipt Date: 20250620
  Transmission Date: 20250717
  Serious: Yes (Death, Other)
  Sender: PIERRE FABRE MEDICAMENT
  Company Number: US-PFM-2024-03763

PATIENT

DRUGS (2)
  1. PROPRANOLOL [Suspect]
     Active Substance: PROPRANOLOL HYDROCHLORIDE
     Indication: Hypertension
     Route: 065
  2. PROPRANOLOL [Suspect]
     Active Substance: PROPRANOLOL HYDROCHLORIDE
     Indication: Off label use

REACTIONS (11)
  - Pneumonitis [Fatal]
  - Gastrointestinal haemorrhage [Fatal]
  - Myelosuppression [Unknown]
  - Hypothyroidism [Unknown]
  - Nausea [Recovering/Resolving]
  - Fatigue [Recovered/Resolved]
  - Premature menopause [Unknown]
  - Vomiting [Recovering/Resolving]
  - Product use issue [Unknown]
  - Product use in unapproved indication [Unknown]
  - Off label use [Unknown]
